FAERS Safety Report 10171716 (Version 1)
Quarter: 2014Q2

REPORT INFORMATION
  Report Type: Spontaneous
  Country: US (occurrence: None)
  Receive Date: 20140428
  Receipt Date: 20140428
  Transmission Date: 20141212
  Serious: No
  Sender: FDA-Public Use
  Company Number: PHEH2013US025141

PATIENT
  Sex: 0

DRUGS (2)
  1. GILENYA (FINGOLIMOD) CAPSULE [Suspect]
  2. BETA BLOCKING AGENTS (NO INGREDIENTS/SUBSTANCES) [Concomitant]

REACTIONS (1)
  - Electrocardiogram Q wave abnormal [None]
